FAERS Safety Report 24779119 (Version 2)
Quarter: 2025Q1

REPORT INFORMATION
  Report Type: Spontaneous
  Country: IT (occurrence: IT)
  Receive Date: 20241226
  Receipt Date: 20250116
  Transmission Date: 20250408
  Serious: Yes (Life-Threatening, Hospitalization, Other)
  Sender: MYLAN
  Company Number: IT-MYLANLABS-2024M1114970

PATIENT
  Age: 13 Year
  Sex: Female
  Weight: 47 kg

DRUGS (24)
  1. PREDNISONE [Suspect]
     Active Substance: PREDNISONE
     Indication: Lymphocytic leukaemia
     Route: 042
  2. PREDNISONE [Suspect]
     Active Substance: PREDNISONE
     Route: 042
  3. METHOTREXATE [Suspect]
     Active Substance: METHOTREXATE
     Indication: Lymphocytic leukaemia
     Route: 037
  4. METHOTREXATE [Suspect]
     Active Substance: METHOTREXATE
     Route: 037
  5. METHOTREXATE [Suspect]
     Active Substance: METHOTREXATE
     Route: 037
  6. METFORMIN [Suspect]
     Active Substance: METFORMIN HYDROCHLORIDE
     Indication: Acquired generalised lipodystrophy
     Dosage: 1000 MILLIGRAM, QD
     Route: 048
     Dates: start: 202105, end: 20220103
  7. METFORMIN [Suspect]
     Active Substance: METFORMIN HYDROCHLORIDE
     Indication: Diabetes mellitus
  8. ASPIRIN [Suspect]
     Active Substance: ASPIRIN
     Indication: Product used for unknown indication
     Route: 065
  9. FENOFIBRATE [Suspect]
     Active Substance: FENOFIBRATE
     Indication: Hypertriglyceridaemia
     Dosage: 145 MILLIGRAM, QD
     Route: 048
     Dates: start: 2018, end: 20220103
  10. FENOFIBRATE [Suspect]
     Active Substance: FENOFIBRATE
     Indication: Acquired generalised lipodystrophy
  11. VINCRISTINE [Suspect]
     Active Substance: VINCRISTINE
     Indication: Lymphocytic leukaemia
     Route: 042
  12. DAUNORUBICIN [Suspect]
     Active Substance: DAUNORUBICIN
     Indication: Lymphocytic leukaemia
     Route: 042
  13. ASPARAGINASE [Suspect]
     Active Substance: ASPARAGINASE
     Indication: Lymphocytic leukaemia
     Route: 030
  14. CYCLOPHOSPHAMIDE [Suspect]
     Active Substance: CYCLOPHOSPHAMIDE
     Indication: Lymphocytic leukaemia
     Route: 042
  15. MERCAPTOPURINE [Suspect]
     Active Substance: MERCAPTOPURINE
     Indication: Lymphocytic leukaemia
     Route: 048
  16. CYTARABINE [Suspect]
     Active Substance: CYTARABINE
     Indication: Lymphocytic leukaemia
     Route: 042
  17. INSULIN GLARGINE [Suspect]
     Active Substance: INSULIN GLARGINE
     Indication: Acquired generalised lipodystrophy
     Dosage: 14 INTERNATIONAL UNIT, QD
     Route: 065
  18. INSULIN GLARGINE [Suspect]
     Active Substance: INSULIN GLARGINE
     Indication: Diabetes mellitus
  19. INSULIN LISPRO [Suspect]
     Active Substance: INSULIN LISPRO
     Indication: Acquired generalised lipodystrophy
     Dosage: 36 INTERNATIONAL UNIT, QD
     Route: 065
  20. INSULIN LISPRO [Suspect]
     Active Substance: INSULIN LISPRO
     Indication: Diabetes mellitus
  21. SEMAGLUTIDE [Suspect]
     Active Substance: SEMAGLUTIDE
     Indication: Acquired generalised lipodystrophy
     Dosage: 0.25 MILLIGRAM, QW
     Route: 058
     Dates: start: 20200824, end: 20220103
  22. SEMAGLUTIDE [Suspect]
     Active Substance: SEMAGLUTIDE
     Indication: Diabetes mellitus
  23. LEVOTHYROXINE [Suspect]
     Active Substance: LEVOTHYROXINE
     Indication: Product used for unknown indication
     Route: 065
  24. PROGESTERONE [Suspect]
     Active Substance: PROGESTERONE
     Indication: Product used for unknown indication
     Route: 065

REACTIONS (3)
  - Left ventricular dysfunction [Recovered/Resolved]
  - Drug ineffective [Unknown]
  - Maternal exposure during pregnancy [Recovered/Resolved]
